FAERS Safety Report 5858919-0 (Version None)
Quarter: 2008Q3

REPORT INFORMATION
  Report Type: 
  Country: None (occurrence: None)
  Receive Date: 20080825
  Receipt Date: 20080819
  Transmission Date: 20090109
  Serious: Yes (Hospitalization)
  Sender: FDA-Public Use
  Company Number: 2008AL005676

PATIENT
  Age: 62 Year
  Sex: Female

DRUGS (3)
  1. DIGOXIN [Suspect]
     Indication: HEART RATE IRREGULAR
     Dosage: 0.125MG, DAILY PO
     Route: 048
  2. ISOSORBIDE [Concomitant]
  3. LASIX [Concomitant]

REACTIONS (1)
  - HEART RATE DECREASED [None]
